FAERS Safety Report 10037053 (Version 2)
Quarter: 2014Q1

REPORT INFORMATION
  Report Type: Spontaneous
  Country: GB (occurrence: GB)
  Receive Date: 20140326
  Receipt Date: 20140327
  Transmission Date: 20141002
  Serious: Yes (Other)
  Sender: FDA-Public Use
  Company Number: GB-DRREDDYS-GER/UKI/14/0039166

PATIENT
  Age: 32 Year
  Sex: Female

DRUGS (7)
  1. MONTELUKAST [Suspect]
     Indication: PRODUCT USED FOR UNKNOWN INDICATION
  2. FEXOFENADINE [Suspect]
     Indication: ASTHMA
     Route: 048
  3. ALENDRONIC ACID [Suspect]
     Indication: PRODUCT USED FOR UNKNOWN INDICATION
  4. SPIRIVA [Suspect]
     Indication: ASTHMA
  5. SYMBICORT [Suspect]
     Indication: ASTHMA
  6. THEOPHYLLINE [Suspect]
     Indication: ASTHMA
     Route: 048
  7. XOLAIR [Suspect]
     Indication: ASTHMA
     Route: 058

REACTIONS (4)
  - Haemorrhage [Recovered/Resolved]
  - Skin infection [Recovering/Resolving]
  - Caesarean section [Unknown]
  - Exposure during pregnancy [Unknown]
